FAERS Safety Report 6887818-0 (Version None)
Quarter: 2010Q3

REPORT INFORMATION
  Report Type: 
  Country: None (occurrence: None)
  Receive Date: 20100708
  Receipt Date: 20090723
  Transmission Date: 20110219
  Serious: Yes (Other)
  Sender: FDA-Public Use
  Company Number: 2009230882

PATIENT
  Age: 47 Year
  Sex: Male
  Weight: 79.4 kg

DRUGS (3)
  1. CHANTIX [Suspect]
     Indication: SMOKING CESSATION THERAPY
     Dates: end: 20090501
  2. SINGULAIR [Concomitant]
  3. BENICAR [Concomitant]

REACTIONS (6)
  - DEPRESSED MOOD [None]
  - FATIGUE [None]
  - FEELING ABNORMAL [None]
  - LETHARGY [None]
  - PERSONALITY CHANGE [None]
  - SUICIDAL IDEATION [None]
